FAERS Safety Report 24037327 (Version 1)
Quarter: 2024Q3

REPORT INFORMATION
  Report Type: Report from Study
  Country: US (occurrence: US)
  Receive Date: 20240702
  Receipt Date: 20240702
  Transmission Date: 20241017
  Serious: Yes (Other)
  Sender: ABBVIE
  Company Number: US-ABBVIE-5810517

PATIENT
  Age: 61 Year
  Sex: Male

DRUGS (2)
  1. VENCLEXTA [Suspect]
     Active Substance: VENETOCLAX
     Indication: Chronic lymphocytic leukaemia
     Dosage: LAST ADMIN DATE - JUN 2024
     Route: 048
     Dates: start: 20240613
  2. VENCLEXTA [Suspect]
     Active Substance: VENETOCLAX
     Indication: Chronic lymphocytic leukaemia
     Route: 048
     Dates: start: 20240613

REACTIONS (7)
  - Loss of consciousness [Unknown]
  - Diarrhoea [Recovering/Resolving]
  - Asthenia [Recovered/Resolved]
  - Headache [Recovering/Resolving]
  - Fatigue [Recovered/Resolved]
  - Disturbance in attention [Unknown]
  - Confusional state [Recovered/Resolved]

NARRATIVE: CASE EVENT DATE: 20240601
